FAERS Safety Report 9849034 (Version 1)
Quarter: 2014Q1

REPORT INFORMATION
  Report Type: Spontaneous
  Country: US (occurrence: None)
  Receive Date: 20140124
  Receipt Date: 20140124
  Transmission Date: 20141002
  Serious: Yes (Death)
  Sender: FDA-Public Use
  Company Number: None

PATIENT
  Age: 67 Year
  Sex: Female
  Weight: 64 kg

DRUGS (1)
  1. EFFIENT [Suspect]
     Indication: ANTIPLATELET THERAPY
     Route: 048
     Dates: start: 20130923

REACTIONS (2)
  - Cerebral haemorrhage [None]
  - Brain herniation [None]
